FAERS Safety Report 14855030 (Version 1)
Quarter: 2018Q2

REPORT INFORMATION
  Report Type: Spontaneous
  Country: US (occurrence: US)
  Receive Date: 20180507
  Receipt Date: 20180507
  Transmission Date: 20180711
  Serious: No
  Sender: FDA-Public Use
  Company Number: US-ROCHE-1933694

PATIENT
  Sex: Male

DRUGS (6)
  1. ATENOLOL. [Concomitant]
     Active Substance: ATENOLOL
  2. ESBRIET [Suspect]
     Active Substance: PIRFENIDONE
     Indication: IDIOPATHIC PULMONARY FIBROSIS
     Route: 048
     Dates: start: 20161008
  3. ASPIRIN. [Concomitant]
     Active Substance: ASPIRIN
  4. CALCIUM D 500 [Concomitant]
     Active Substance: CALCIUM\VITAMIN D
  5. FISH OIL [Concomitant]
     Active Substance: FISH OIL
  6. LISINOPRIL. [Concomitant]
     Active Substance: LISINOPRIL

REACTIONS (1)
  - Asthenia [Unknown]
